FAERS Safety Report 8024341-4 (Version None)
Quarter: 2012Q1

REPORT INFORMATION
  Report Type: 
  Country: None (occurrence: None)
  Receive Date: 20120105
  Receipt Date: 20111228
  Transmission Date: 20120608
  Serious: Yes (Hospitalization, Other)
  Sender: FDA-Public Use
  Company Number: PHHY2011FR113577

PATIENT
  Sex: Female

DRUGS (9)
  1. UVEDOSE [Concomitant]
  2. POTASSIUM CHLORIDE [Concomitant]
  3. EXJADE [Suspect]
     Dosage: 500 MG, DAILY
     Route: 048
     Dates: start: 20110526, end: 20111207
  4. PHOCYTAN [Concomitant]
  5. EXJADE [Suspect]
     Dosage: 25 MG/KG,
     Route: 048
     Dates: start: 20090821
  6. SPECIAFOLDINE [Concomitant]
  7. EXJADE [Suspect]
     Indication: SERUM FERRITIN INCREASED
     Dosage: 15 MG/KG
     Route: 048
     Dates: start: 20080618
  8. ZINC GLUCONATE [Concomitant]
  9. EXJADE [Suspect]
     Dosage: 375 MG, DAILY
     Route: 048
     Dates: start: 20100301

REACTIONS (27)
  - NITRITE URINE PRESENT [None]
  - LEUKOCYTURIA [None]
  - ALANINE AMINOTRANSFERASE INCREASED [None]
  - TRANSFUSION RELATED COMPLICATION [None]
  - HYPOACUSIS [None]
  - HYPERCHLORAEMIA [None]
  - NEUTROPHIL COUNT INCREASED [None]
  - GLYCOSURIA [None]
  - BLOOD ALKALINE PHOSPHATASE INCREASED [None]
  - HYPERBILIRUBINAEMIA [None]
  - PYELONEPHRITIS [None]
  - RENAL TUBULAR DISORDER [None]
  - HAEMATURIA [None]
  - HYPOGLYCAEMIA [None]
  - VOMITING [None]
  - HYPOPHOSPHATAEMIA [None]
  - ACTIVATED PARTIAL THROMBOPLASTIN TIME PROLONGED [None]
  - PROTEINURIA [None]
  - ABDOMINAL PAIN [None]
  - LEUKOCYTOSIS [None]
  - HYPOKALAEMIA [None]
  - ENTEROBIASIS [None]
  - CHOLESTASIS [None]
  - GROWTH RETARDATION [None]
  - PYREXIA [None]
  - CHILLS [None]
  - ACIDOSIS [None]
